FAERS Safety Report 6121340-4 (Version None)
Quarter: 2009Q1

REPORT INFORMATION
  Report Type: 
  Country: None (occurrence: None)
  Receive Date: 20090317
  Receipt Date: 20090302
  Transmission Date: 20090719
  Serious: Yes (Other)
  Sender: FDA-Public Use
  Company Number: US-PFIZER INC-2009164763

PATIENT
  Sex: Female
  Weight: 114.74 kg

DRUGS (5)
  1. LYRICA [Suspect]
     Indication: FIBROMYALGIA
     Dates: start: 20071101, end: 20071201
  2. VICODIN [Concomitant]
     Dosage: UNK
  3. TRAZODONE [Concomitant]
     Dosage: 100 MG, UNK
  4. VALIUM [Concomitant]
     Dosage: 5 MG, UNK
  5. ALL OTHER THERAPEUTIC PRODUCTS [Concomitant]
     Dosage: UNK

REACTIONS (12)
  - BLOOD CALCIUM INCREASED [None]
  - DIZZINESS [None]
  - ELECTROLYTE IMBALANCE [None]
  - FLUID RETENTION [None]
  - GAIT DISTURBANCE [None]
  - GASTROENTERITIS [None]
  - ILL-DEFINED DISORDER [None]
  - JOINT RANGE OF MOTION DECREASED [None]
  - MYOCARDIAL INFARCTION [None]
  - SYNCOPE [None]
  - URINARY TRACT INFECTION [None]
  - WEIGHT INCREASED [None]
